FAERS Safety Report 5210611-1 (Version None)
Quarter: 2007Q1

REPORT INFORMATION
  Report Type: 
  Country: None (occurrence: None)
  Receive Date: 20070117
  Receipt Date: 20070110
  Transmission Date: 20070707
  Serious: Yes (Other)
  Sender: FDA-Public Use
  Company Number: SE-BRISTOL-MYERS SQUIBB COMPANY-13642590

PATIENT

DRUGS (1)
  1. KENACORT [Suspect]

REACTIONS (1)
  - ASTHMA [None]
